FAERS Safety Report 19047746 (Version 3)
Quarter: 2021Q2

REPORT INFORMATION
  Report Type: Spontaneous
  Country: GR (occurrence: GR)
  Receive Date: 20210324
  Receipt Date: 20210510
  Transmission Date: 20210717
  Serious: Yes (Other)
  Sender: FDA-Public Use
  Company Number: GR-AMGEN-GRCSP2021043784

PATIENT
  Age: 55 Year
  Sex: Female

DRUGS (6)
  1. ADALIMUMAB [Suspect]
     Active Substance: ADALIMUMAB
     Indication: PSORIATIC ARTHROPATHY
     Dosage: UNK
     Route: 065
     Dates: start: 2014, end: 2016
  2. ENBREL [Suspect]
     Active Substance: ETANERCEPT
     Indication: PSORIATIC ARTHROPATHY
     Dosage: UNK
     Route: 065
     Dates: start: 2008
  3. ENBREL [Suspect]
     Active Substance: ETANERCEPT
     Dosage: UNK
     Route: 065
     Dates: start: 2010
  4. METHOTREXATE SODIUM. [Suspect]
     Active Substance: METHOTREXATE SODIUM
     Indication: PSORIATIC ARTHROPATHY
     Dosage: UNK
     Route: 058
     Dates: start: 2005, end: 2016
  5. INFLIXIMAB [Suspect]
     Active Substance: INFLIXIMAB
     Indication: PSORIATIC ARTHROPATHY
     Dosage: UNK
     Route: 065
     Dates: start: 2005, end: 2008
  6. INFLIXIMAB [Suspect]
     Active Substance: INFLIXIMAB
     Dosage: UNK
     Route: 065

REACTIONS (3)
  - Pyoderma gangrenosum [Unknown]
  - Off label use [Unknown]
  - Therapeutic product effect incomplete [Unknown]

NARRATIVE: CASE EVENT DATE: 2005
